FAERS Safety Report 9237247 (Version 4)
Quarter: 2013Q2

REPORT INFORMATION
  Report Type: Report from Study
  Country: BR (occurrence: BR)
  Receive Date: 20130417
  Receipt Date: 20130605
  Transmission Date: 20140414
  Serious: Yes (Hospitalization)
  Sender: FDA-Public Use
  Company Number: BR-ABBOTT-13P-020-1077124-00

PATIENT
  Age: 45 Year
  Sex: Female
  Weight: 98 kg

DRUGS (5)
  1. HUMIRA [Suspect]
     Indication: RHEUMATOID ARTHRITIS
     Route: 058
     Dates: start: 20130408, end: 20130418
  2. PREDNISONE [Concomitant]
     Indication: RHEUMATOID ARTHRITIS
  3. SYMBICORT [Concomitant]
     Indication: ASTHMA
     Route: 048
  4. SYMBICORT [Concomitant]
     Indication: BRONCHITIS
  5. METFORMIN [Concomitant]
     Indication: DIABETES MELLITUS
     Route: 048

REACTIONS (5)
  - Unevaluable event [Unknown]
  - Wound infection [Not Recovered/Not Resolved]
  - Bacterial infection [Unknown]
  - Fall [Unknown]
  - Limb injury [Unknown]
